FAERS Safety Report 7929693-9 (Version None)
Quarter: 2011Q4

REPORT INFORMATION
  Report Type: 
  Country: None (occurrence: None)
  Receive Date: 20111121
  Receipt Date: 20111115
  Transmission Date: 20120403
  Serious: Yes (Other)
  Sender: FDA-Public Use
  Company Number: FR-PFIZER INC-2011103940

PATIENT
  Age: 64 Year
  Sex: Female
  Weight: 80 kg

DRUGS (14)
  1. LYRICA [Suspect]
     Dosage: 3 CAPSULES DAILY
     Dates: end: 20110507
  2. DIGOXIN [Concomitant]
     Indication: CARDIAC FAILURE
     Route: 048
  3. NEXIUM [Concomitant]
     Indication: GASTROOESOPHAGEAL REFLUX DISEASE
     Dosage: 40 MG DAILY
  4. MAGNE-B6 [Concomitant]
     Dosage: 2 DF DAILY
     Route: 048
  5. LASILIX 20 [Concomitant]
     Indication: CARDIAC FAILURE
     Dosage: 1 DF DAILY
     Route: 048
  6. ACETAMINOPHEN [Concomitant]
     Indication: PAIN
     Dosage: 2 DF DAILY
     Route: 048
  7. FLUTICASONE PROPIONATE/SALMETEROL [Concomitant]
  8. METEOSPASMYL [Concomitant]
     Dosage: 3 DF DAILY
     Route: 048
  9. LYRICA [Suspect]
     Dosage: 2 CAPSULES DAILY
  10. ATARAX [Concomitant]
  11. LYRICA [Suspect]
     Indication: NEURALGIA
     Dosage: 50 MG, DAILY
     Dates: start: 20110503
  12. TAREG 80 [Concomitant]
     Indication: HYPERTENSION
     Dosage: 1 DF DAILY
     Route: 048
  13. KARDEGIC 75 [Concomitant]
     Indication: CARDIAC FAILURE
     Dosage: 1 DF DAILY
     Route: 048
  14. CLONAZEPAM [Concomitant]

REACTIONS (15)
  - PARAESTHESIA [None]
  - ANAESTHESIA [None]
  - NAUSEA [None]
  - DEAFNESS [None]
  - PRURITUS GENERALISED [None]
  - DYSSTASIA [None]
  - VISUAL ACUITY REDUCED [None]
  - VISION BLURRED [None]
  - PAIN IN EXTREMITY [None]
  - VERTIGO [None]
  - URINARY INCONTINENCE [None]
  - PAIN [None]
  - NECK PAIN [None]
  - DYSGEUSIA [None]
  - JOINT CREPITATION [None]
